FAERS Safety Report 24718745 (Version 1)
Quarter: 2024Q4

REPORT INFORMATION
  Report Type: Spontaneous
  Country: US (occurrence: US)
  Receive Date: 20241210
  Receipt Date: 20241210
  Transmission Date: 20250115
  Serious: No
  Sender: INSUD PHARMA
  Company Number: US-INSUD PHARMA-2411US09068

PATIENT

DRUGS (1)
  1. SLYND [Suspect]
     Active Substance: DROSPIRENONE
     Indication: Oral contraception
     Dosage: UNKNOWN
     Route: 048
     Dates: start: 2024

REACTIONS (3)
  - Heavy menstrual bleeding [Not Recovered/Not Resolved]
  - Intermenstrual bleeding [Recovered/Resolved]
  - Amenorrhoea [Recovered/Resolved]

NARRATIVE: CASE EVENT DATE: 20241001
